FAERS Safety Report 6300622-7 (Version None)
Quarter: 2009Q3

REPORT INFORMATION
  Report Type: 
  Country: None (occurrence: None)
  Receive Date: 20090806
  Receipt Date: 20090729
  Transmission Date: 20100115
  Serious: Yes (Hospitalization)
  Sender: FDA-Public Use
  Company Number: US-ABBOTT-09P-163-0588292-00

PATIENT
  Sex: Female

DRUGS (3)
  1. DEPAKOTE ER [Suspect]
     Indication: BIPOLAR DISORDER
     Dosage: 4 - 250 MG TABLETS DAILY AT BEDTIME
     Dates: start: 20070328, end: 20090218
  2. DEPAKOTE ER [Suspect]
     Dosage: 2 - 500 MG TABLETS AT BEDTIME
     Dates: start: 20090218, end: 20090601
  3. LEXAPRO [Concomitant]
     Indication: DRUG USE FOR UNKNOWN INDICATION

REACTIONS (1)
  - PANCREATITIS [None]
